FAERS Safety Report 4722591-3 (Version None)
Quarter: 2005Q3

REPORT INFORMATION
  Report Type: 
  Country: None (occurrence: None)
  Receive Date: 20050722
  Receipt Date: 20050719
  Transmission Date: 20060218
  Serious: Yes (Other)
  Sender: FDA-Public Use
  Company Number: GB-MERCK-0507GBR00148

PATIENT
  Age: 68 Year
  Sex: Female

DRUGS (4)
  1. ZOCOR [Suspect]
     Indication: HYPERCHOLESTEROLAEMIA
     Route: 048
     Dates: start: 20050210, end: 20050517
  2. PNEUMOCOCCAL 23V POLYSACCHARIDE VACCINE [Suspect]
     Route: 051
     Dates: start: 20050514, end: 20050514
  3. DILTIAZEM HYDROCHLORIDE [Concomitant]
     Route: 048
     Dates: start: 19970225
  4. ACETAMINOPHEN AND DIHYDROCODEINE BITARTRATE [Concomitant]
     Route: 048
     Dates: start: 20000327

REACTIONS (4)
  - ALANINE AMINOTRANSFERASE INCREASED [None]
  - BLOOD CREATINE PHOSPHOKINASE INCREASED [None]
  - MYALGIA [None]
  - MYOSITIS [None]
